FAERS Safety Report 8823370 (Version 2)
Quarter: 2012Q4

REPORT INFORMATION
  Report Type: 
  Country: US (occurrence: US)
  Receive Date: 20121003
  Receipt Date: 20121016
  Transmission Date: 20130627
  Serious: Yes (Other)
  Sender: FDA-Public Use
  Company Number: US-ALEXION PHARMACEUTICALS INC.-A201201854

PATIENT
  Sex: Male
  Weight: 57.14 kg

DRUGS (10)
  1. SOLIRIS 300MG [Suspect]
     Indication: PAROXYSMAL NOCTURNAL HAEMOGLOBINURIA
     Dosage: 900 mg, q2w
     Route: 042
     Dates: start: 20100402
  2. MORPHINE [Concomitant]
     Dosage: 20-40 mg, q2h
  3. LORAZEPAM [Concomitant]
     Dosage: 1-2 mg q4-6h
  4. CASODEX 50 [Concomitant]
     Indication: PROSTATE CANCER
     Dosage: UNK
  5. PAXIL [Concomitant]
     Dosage: UNK
  6. PREVACID [Concomitant]
     Dosage: UNK
  7. RESTORIL [Concomitant]
     Dosage: UNK
  8. FOLIC ACID [Concomitant]
     Dosage: UNK
  9. PREDNISONE [Concomitant]
     Dosage: UNK
  10. VITAMINS NOS [Concomitant]
     Dosage: UNK

REACTIONS (3)
  - Gastric cancer [Not Recovered/Not Resolved]
  - Abdominal pain upper [Not Recovered/Not Resolved]
  - Diarrhoea [Not Recovered/Not Resolved]
